FAERS Safety Report 19410306 (Version 1)
Quarter: 2021Q2

REPORT INFORMATION
  Report Type: Spontaneous
  Country: US (occurrence: US)
  Receive Date: 20210611
  Receipt Date: 20210611
  Transmission Date: 20210717
  Serious: Yes (Hospitalization)
  Sender: FDA-Public Use
  Company Number: None

PATIENT
  Age: 37 Year

DRUGS (11)
  1. EPINEPHRINE. [Concomitant]
     Active Substance: EPINEPHRINE
     Dates: start: 20200608
  2. FEXOFENADINE [Concomitant]
     Active Substance: FEXOFENADINE HYDROCHLORIDE
     Dates: start: 20200318
  3. FLOXETINE [Concomitant]
     Active Substance: FLUOXETINE HYDROCHLORIDE
     Dates: start: 20190130
  4. AMPHET/DEXTR TAB [Concomitant]
     Dates: start: 20190305
  5. CLOBETASOL [Concomitant]
     Active Substance: CLOBETASOL
     Dates: start: 20200410
  6. FLUDROCORT [Concomitant]
     Dates: start: 20200414
  7. GAMMAGARD S/D [Suspect]
     Active Substance: HUMAN IMMUNOGLOBULIN G
     Indication: IMMUNODEFICIENCY COMMON VARIABLE
     Dosage: ?          OTHER FREQUENCY:EVERY 2 WEEKS;?
     Route: 042
     Dates: start: 20180620
  8. AMOX/K CLAV [Concomitant]
     Active Substance: AMOXICILLIN\CLAVULANATE POTASSIUM
     Dates: start: 20190213
  9. DESONIDE CREAM [Concomitant]
     Active Substance: DESONIDE
     Dates: start: 20200410
  10. AZITHROMYCIN ANHYDROUS. [Concomitant]
     Active Substance: AZITHROMYCIN ANHYDROUS
     Dates: start: 20200328
  11. DIPHENHYDRAMINE. [Concomitant]
     Active Substance: DIPHENHYDRAMINE
     Dates: start: 20190415

REACTIONS (5)
  - Erythema [None]
  - Swelling [None]
  - Dysphonia [None]
  - Dyspnoea [None]
  - Chest discomfort [None]

NARRATIVE: CASE EVENT DATE: 20210610
